FAERS Safety Report 6324477-X (Version None)
Quarter: 2009Q3

REPORT INFORMATION
  Report Type: 
  Country: None (occurrence: None)
  Receive Date: 20090824
  Receipt Date: 20090813
  Transmission Date: 20100115
  Serious: Yes (Other)
  Sender: FDA-Public Use
  Company Number: NSADSS2002033737

PATIENT
  Age: 68 Year
  Sex: Female

DRUGS (11)
  1. REMICADE [Suspect]
     Route: 041
  2. REMICADE [Suspect]
     Indication: RHEUMATOID ARTHRITIS
     Route: 041
  3. MTX [Concomitant]
     Dates: start: 19990801
  4. NABUMETONE [Concomitant]
     Dates: start: 19990801
  5. VALIUM [Concomitant]
     Dates: start: 19950101, end: 20030301
  6. LITHIUM CARBONATE [Concomitant]
     Dates: start: 19800101
  7. PREDNISONE TAB [Concomitant]
  8. FOSAMAX [Concomitant]
     Dates: start: 19970101
  9. SYNTHROID [Concomitant]
     Dates: start: 19800101
  10. ZOCOR [Concomitant]
     Dates: start: 20020201
  11. CALCIUM WITH VITAMIN D [Concomitant]
     Dates: start: 19950101

REACTIONS (1)
  - LYMPHOCYTIC LEUKAEMIA [None]
